FAERS Safety Report 5816063-2 (Version None)
Quarter: 2008Q3

REPORT INFORMATION
  Report Type: 
  Country: None (occurrence: None)
  Receive Date: 20080716
  Receipt Date: 20070629
  Transmission Date: 20090109
  Serious: Yes (Life-Threatening, Hospitalization)
  Sender: FDA-Public Use
  Company Number: 2007US001521

PATIENT
  Age: 58 Year
  Sex: Male
  Weight: 75.7 kg

DRUGS (6)
  1. ADENOSCAN [Suspect]
     Indication: SCAN MYOCARDIAL PERFUSION
     Dosage: 41.8 MG, IV NOS
     Route: 042
     Dates: start: 20070620, end: 20070620
  2. ATROVENT [Concomitant]
  3. LISINOPRIL (LISINOPRIL DIHYDRATE) [Concomitant]
  4. LASIX [Concomitant]
  5. POTASSIUM (POTASSIUM BICARBONATE) [Concomitant]
  6. CRESTOR [Concomitant]

REACTIONS (2)
  - CARDIAC ARREST [None]
  - DYSPNOEA [None]
